FAERS Safety Report 8500518-6 (Version None)
Quarter: 2012Q3

REPORT INFORMATION
  Report Type: 
  Country: None (occurrence: None)
  Receive Date: 20120710
  Receipt Date: 20120706
  Transmission Date: 20120928
  Serious: Yes (Hospitalization, Other)
  Sender: FDA-Public Use
  Company Number: CA-ROCHE-1051921

PATIENT
  Sex: Female
  Weight: 90.8 kg

DRUGS (8)
  1. ASPIRIN [Concomitant]
     Indication: ANTICOAGULANT THERAPY
     Route: 048
  2. AMLODIPINE [Concomitant]
     Route: 048
  3. VEMURAFENIB [Suspect]
     Indication: METASTATIC MALIGNANT MELANOMA
     Route: 048
     Dates: start: 20120309
  4. METROPOLOL COMP [Concomitant]
     Indication: HYPERTENSION
     Route: 065
  5. ACETAMINOPHEN [Concomitant]
     Indication: PAIN
     Route: 048
  6. NORVASC [Concomitant]
     Indication: HYPERTENSION
     Route: 048
  7. VEMURAFENIB [Suspect]
     Route: 048
     Dates: start: 20120301
  8. ASPIRIN [Concomitant]

REACTIONS (15)
  - VERTIGO [None]
  - SUNBURN [None]
  - MASS [None]
  - BACK PAIN [None]
  - DEHYDRATION [None]
  - HYPERTENSION [None]
  - RASH [None]
  - FATIGUE [None]
  - WEIGHT DECREASED [None]
  - LOWER RESPIRATORY TRACT INFECTION [None]
  - DYSPNOEA [None]
  - COUGH [None]
  - DIZZINESS [None]
  - PNEUMONIA [None]
  - SKIN ULCER [None]
